FAERS Safety Report 8815694 (Version 2)
Quarter: 2012Q4

REPORT INFORMATION
  Report Type: 
  Country: PH (occurrence: PH)
  Receive Date: 20120928
  Receipt Date: 20121017
  Transmission Date: 20130627
  Serious: Yes (Death, Hospitalization, Other)
  Sender: FDA-Public Use
  Company Number: PH-BAXTER-2012BAX017988

PATIENT
  Sex: Female

DRUGS (2)
  1. DIANEAL PD2 WITH 1.5% DEXTROSE [Suspect]
     Indication: CAPD
     Route: 033
     Dates: start: 20120603, end: 20120920
  2. DIANEAL PD2 WITH 4.25% DEXTROSE [Suspect]
     Indication: CAPD
     Route: 033
     Dates: start: 20120603, end: 20120920

REACTIONS (5)
  - Sepsis [Fatal]
  - Renal failure acute [Unknown]
  - Convulsion [Unknown]
  - Coma [Unknown]
  - Peritonitis [Unknown]
